FAERS Safety Report 8950597 (Version 2)
Quarter: 2013Q1

REPORT INFORMATION
  Report Type: Spontaneous
  Country: US (occurrence: US)
  Receive Date: 20121207
  Receipt Date: 20130228
  Transmission Date: 20140127
  Serious: Yes (Hospitalization)
  Sender: FDA-Public Use
  Company Number: US-BAYER-2012-126422

PATIENT
  Sex: Female
  Weight: 65.76 kg

DRUGS (9)
  1. YASMIN [Suspect]
     Indication: CONTRACEPTION
     Dosage: UNK
     Dates: start: 2002, end: 201205
  2. YASMIN [Suspect]
     Indication: ACNE
  3. YAZ [Suspect]
     Indication: CONTRACEPTION
     Dosage: UNK
     Dates: start: 2002, end: 201205
  4. YAZ [Suspect]
     Indication: ACNE
  5. SPIRONOLACTONE [Concomitant]
  6. FLOMAX [Concomitant]
  7. CIPRO [Concomitant]
  8. DIFLUCAN [Concomitant]
  9. MONISTAT [Concomitant]

REACTIONS (10)
  - Thrombosis [None]
  - Haemangioma of liver [None]
  - Gallbladder disorder [None]
  - Adrenal adenoma [None]
  - Vaginal laceration [None]
  - Hypoaesthesia [None]
  - Anxiety [None]
  - Depression [None]
  - Pain [None]
  - Injury [None]
